FAERS Safety Report 7940323-2 (Version None)
Quarter: 2011Q4

REPORT INFORMATION
  Report Type: 
  Country: None (occurrence: None)
  Receive Date: 20111126
  Receipt Date: 20110926
  Transmission Date: 20120403
  Serious: No
  Sender: FDA-Public Use
  Company Number: US-BAYER-2011-093053

PATIENT
  Age: 75 Year
  Sex: Female
  Weight: 59 kg

DRUGS (4)
  1. ALEVE (CAPLET) [Suspect]
     Indication: ARTHRITIS
     Dosage: UNK, QD
     Route: 048
  2. UNKNOWN [Concomitant]
  3. EVISTA [Concomitant]
  4. MULTI-VITAMINS [Concomitant]

REACTIONS (1)
  - NO ADVERSE EVENT [None]
